FAERS Safety Report 6507092-4 (Version None)
Quarter: 2009Q4

REPORT INFORMATION
  Report Type: 
  Country: None (occurrence: None)
  Receive Date: 20091221
  Receipt Date: 20091209
  Transmission Date: 20100525
  Serious: Yes (Other)
  Sender: FDA-Public Use
  Company Number: PHHY2009BR54552

PATIENT
  Age: 62 Year
  Sex: Male
  Weight: 70 kg

DRUGS (4)
  1. DIOVAN [Suspect]
     Dosage: 1 TABLET DAILY
  2. AEROLIN [Suspect]
     Indication: EMPHYSEMA
     Dosage: ONCE A DAY
  3. CAPTOPRIL [Concomitant]
     Dosage: 1 DF, TID
     Dates: start: 20010101
  4. HYDROCHLOROTHIAZIDE [Concomitant]
     Indication: HYPERTENSION
     Dosage: 1 TABLET (25 MG) DAILY
     Dates: start: 20010101

REACTIONS (4)
  - DYSPNOEA [None]
  - LOWER LIMB FRACTURE [None]
  - MYOCARDIAL OEDEMA [None]
  - SKIN DISCOLOURATION [None]
